FAERS Safety Report 23871697 (Version 2)
Quarter: 2024Q2

REPORT INFORMATION
  Report Type: Spontaneous
  Country: CN (occurrence: CN)
  Receive Date: 20240520
  Receipt Date: 20240520
  Transmission Date: 20240715
  Serious: Yes (Death, Other)
  Sender: FDA-Public Use
  Company Number: CN-009507513-2405CHN002884

PATIENT
  Age: 38 Year
  Sex: Male

DRUGS (2)
  1. TEMOZOLOMIDE [Suspect]
     Active Substance: TEMOZOLOMIDE
     Indication: Astrocytoma, low grade
     Dosage: 150-200MG/M2/DAY, ORALLY FOR 5 DAYS ON WITH 23 DAYS OFF, THREE-CYCLE COURSE
     Route: 048
     Dates: start: 201703, end: 2017
  2. TEMOZOLOMIDE [Suspect]
     Active Substance: TEMOZOLOMIDE
     Indication: Astrocytoma malignant
     Dosage: 100 MG/M2/DAY ON A 28-DAY CYCLE, ORALLY FOR 7 DAYS ON WITH 7 DAYS OFF, FOR 9 CYCLES
     Route: 048
     Dates: start: 201712

REACTIONS (5)
  - Malignant neoplasm progression [Fatal]
  - Hypermutation [Unknown]
  - Drug resistance [Unknown]
  - Product use in unapproved indication [Unknown]
  - Product use issue [Unknown]

NARRATIVE: CASE EVENT DATE: 20170301
